FAERS Safety Report 10534066 (Version 6)
Quarter: 2014Q4

REPORT INFORMATION
  Report Type: Spontaneous
  Country: US (occurrence: None)
  Receive Date: 20141020
  Receipt Date: 20141212
  Transmission Date: 20150529
  Serious: Yes (Other)
  Sender: FDA-Public Use
  Company Number: 2014SA138974

PATIENT
  Age: 51 Year
  Sex: Female
  Weight: 97.97 kg

DRUGS (5)
  1. MOTRIN [Concomitant]
     Active Substance: IBUPROFEN
  2. VITAMIN D3 [Concomitant]
     Active Substance: CHOLECALCIFEROL
  3. CALCIUM [Concomitant]
     Active Substance: CALCIUM
  4. MULTIVITAMINS [Concomitant]
     Active Substance: VITAMINS
  5. ICY HOT [Suspect]
     Active Substance: MENTHOL\METHYL SALICYLATE
     Indication: BACK PAIN
     Dates: start: 20141001, end: 20141002

REACTIONS (11)
  - Burning sensation [None]
  - Product quality issue [None]
  - Anxiety [None]
  - Chemical injury [None]
  - Pruritus [None]
  - Scar [None]
  - Keloid scar [None]
  - Pain [None]
  - Wound haemorrhage [None]
  - Pyrexia [None]
  - Burns second degree [None]

NARRATIVE: CASE EVENT DATE: 20141003
